FAERS Safety Report 5639987-8 (Version None)
Quarter: 2008Q1

REPORT INFORMATION
  Report Type: 
  Country: None (occurrence: None)
  Receive Date: 20080227
  Receipt Date: 20080204
  Transmission Date: 20080703
  Serious: No
  Sender: FDA-Public Use
  Company Number: US-BAYER-200813364NA

PATIENT
  Sex: Female

DRUGS (1)
  1. YASMIN [Suspect]
     Route: 048
     Dates: start: 20071101

REACTIONS (1)
  - NAUSEA [None]
